FAERS Safety Report 21988855 (Version 3)
Quarter: 2023Q4

REPORT INFORMATION
  Report Type: Report from Study
  Country: US (occurrence: None)
  Receive Date: 20230214
  Receipt Date: 20231103
  Transmission Date: 20240110
  Serious: Yes (Life-Threatening, Hospitalization)
  Sender: FDA-Public Use
  Company Number: US-ROCHE-3284106

PATIENT
  Age: 66 Year
  Sex: Male

DRUGS (18)
  1. OBINUTUZUMAB [Suspect]
     Active Substance: OBINUTUZUMAB
     Indication: Non-small cell lung cancer metastatic
     Route: 042
     Dates: start: 20221004
  2. NAPTUMOMAB ESTAFENATOX [Suspect]
     Active Substance: NAPTUMOMAB ESTAFENATOX
     Indication: Non-small cell lung cancer metastatic
     Dosage: 893 MCG, ON DAYS 1-4 EVERY 21 DAYS.
     Route: 042
     Dates: start: 20221017
  3. DOCETAXEL [Suspect]
     Active Substance: DOCETAXEL\DOCETAXEL ANHYDROUS
     Indication: Non-small cell lung cancer metastatic
     Dosage: ON DAY 5 EVERY 21 DAYS.
     Route: 042
     Dates: start: 20221021
  4. ESCITALOPRAM [Concomitant]
     Active Substance: ESCITALOPRAM OXALATE
     Indication: Anxiety
     Route: 048
  5. ESCITALOPRAM [Concomitant]
     Active Substance: ESCITALOPRAM OXALATE
     Indication: Depression
  6. SENNA-S [Concomitant]
     Active Substance: DOCUSATE SODIUM\SENNOSIDES
     Indication: Constipation
     Dosage: (SENNOSIDE 8.5 MG/DOCUSATE 50 MG) TWO TABLETS ORALLY TWICE DAILY
     Route: 048
     Dates: start: 20220830
  7. TRAMADOL [Concomitant]
     Active Substance: TRAMADOL\TRAMADOL HYDROCHLORIDE
     Indication: Pathological fracture
     Dosage: EVERY 6 HOURS
     Route: 048
     Dates: start: 20220816
  8. XARELTO [Concomitant]
     Active Substance: RIVAROXABAN
     Indication: Hypertension
     Route: 048
     Dates: start: 20220920
  9. XARELTO [Concomitant]
     Active Substance: RIVAROXABAN
     Indication: Atrial fibrillation
  10. ALBUTEROL SULFATE [Concomitant]
     Active Substance: ALBUTEROL SULFATE
     Indication: Chronic obstructive pulmonary disease
     Dosage: 90 MCG
     Dates: start: 201605
  11. OMEPRAZOLE [Concomitant]
     Active Substance: OMEPRAZOLE
     Indication: Gastrooesophageal reflux disease
     Route: 048
     Dates: start: 200504
  12. TYLENOL [Concomitant]
     Active Substance: ACETAMINOPHEN
     Indication: Pathological fracture
     Route: 048
     Dates: start: 20220816
  13. DEXAMETHASONE [Concomitant]
     Active Substance: DEXAMETHASONE
     Dosage: TWICE DAILY DAY PRIOR AND AFTER TAXOTERE FOR PROPHYLAXIS
     Route: 048
     Dates: start: 20221020
  14. OXYCODONE [Concomitant]
     Active Substance: OXYCODONE
     Indication: Pathological fracture
     Route: 048
     Dates: start: 20221222
  15. OXYCODONE [Concomitant]
     Active Substance: OXYCODONE
     Indication: Pain
  16. LUBIPROSTONE [Concomitant]
     Active Substance: LUBIPROSTONE
     Indication: Constipation
     Dosage: 24 MCG
     Route: 048
     Dates: start: 20221219
  17. COMPAZINE [Concomitant]
     Active Substance: PROCHLORPERAZINE MALEATE
     Indication: Nausea
     Dosage: EVERY 6 HOURS AS NEEDED
     Route: 048
     Dates: start: 20221220
  18. NEULASTA [Concomitant]
     Active Substance: PEGFILGRASTIM
     Indication: Prophylaxis
     Dosage: EVERY 21 DAYS FOR NEUTROPENIA PROPHYLAXIS
     Route: 058
     Dates: start: 20221223

REACTIONS (2)
  - Acute respiratory failure [Recovered/Resolved]
  - Haemophilus infection [Recovered/Resolved]

NARRATIVE: CASE EVENT DATE: 20230121
